FAERS Safety Report 22643904 (Version 1)
Quarter: 2023Q2

REPORT INFORMATION
  Report Type: Spontaneous
  Country: US (occurrence: US)
  Receive Date: 20230627
  Receipt Date: 20230627
  Transmission Date: 20230721
  Serious: No
  Sender: FDA-Public Use
  Company Number: US-LEADINGPHARMA-US-2023LEASPO00176

PATIENT
  Age: 73 Year
  Sex: Male
  Weight: 175 kg

DRUGS (3)
  1. LORAZEPAM [Suspect]
     Active Substance: LORAZEPAM
     Indication: Anxiety
     Dosage: HALF DOSE
     Route: 048
     Dates: start: 20230531, end: 20230531
  2. LORAZEPAM [Suspect]
     Active Substance: LORAZEPAM
     Indication: Muscle spasms
  3. LORAZEPAM [Suspect]
     Active Substance: LORAZEPAM
     Indication: Epilepsy

REACTIONS (9)
  - Hangover [Unknown]
  - Rash [Unknown]
  - Product taste abnormal [Unknown]
  - Dysgeusia [Unknown]
  - Vomiting [Unknown]
  - Product odour abnormal [Unknown]
  - Product solubility abnormal [Unknown]
  - Wrong technique in product usage process [Unknown]
  - Product use in unapproved indication [Unknown]

NARRATIVE: CASE EVENT DATE: 20230531
